FAERS Safety Report 12897108 (Version 3)
Quarter: 2016Q4

REPORT INFORMATION
  Report Type: Spontaneous
  Country: US (occurrence: US)
  Receive Date: 20161031
  Receipt Date: 20161228
  Transmission Date: 20170207
  Serious: Yes (Disabling, Other)
  Sender: FDA-Public Use
  Company Number: US-WEST-WARD PHARMACEUTICALS CORP.-US-H14001-16-02289

PATIENT
  Sex: Male

DRUGS (5)
  1. PREDNISONE. [Suspect]
     Active Substance: PREDNISONE
     Route: 048
  2. PREDNISONE. [Suspect]
     Active Substance: PREDNISONE
     Route: 048
  3. PREDNISONE. [Suspect]
     Active Substance: PREDNISONE
     Route: 048
  4. PREDNISONE. [Suspect]
     Active Substance: PREDNISONE
     Route: 048
     Dates: end: 2016
  5. PREDNISONE. [Suspect]
     Active Substance: PREDNISONE
     Indication: IMMUNE THROMBOCYTOPENIC PURPURA
     Route: 048
     Dates: start: 201402

REACTIONS (5)
  - Drug ineffective [Recovered/Resolved]
  - Balance disorder [Recovered/Resolved]
  - Insomnia [Recovered/Resolved]
  - Dizziness [Recovered/Resolved]
  - Weight increased [Recovered/Resolved]

NARRATIVE: CASE EVENT DATE: 2014
